FAERS Safety Report 23345379 (Version 1)
Quarter: 2023Q4

REPORT INFORMATION
  Report Type: Report from Study
  Country: CO (occurrence: None)
  Receive Date: 20231228
  Receipt Date: 20231228
  Transmission Date: 20240110
  Serious: Yes (Death, Life-Threatening, Hospitalization, Other)
  Sender: FDA-Public Use
  Company Number: 2023A293931

PATIENT
  Age: 24531 Day
  Sex: Female
  Weight: 50 kg

DRUGS (1)
  1. LYNPARZA [Suspect]
     Active Substance: OLAPARIB
     Indication: Neoplasm prostate
     Route: 048
     Dates: start: 20231203, end: 20231221

REACTIONS (3)
  - Respiratory arrest [Fatal]
  - Dizziness [Fatal]
  - Drug intolerance [Unknown]

NARRATIVE: CASE EVENT DATE: 20231222
